FAERS Safety Report 5403055-0 (Version None)
Quarter: 2007Q3

REPORT INFORMATION
  Report Type: 
  Country: None (occurrence: None)
  Receive Date: 20070801
  Receipt Date: 20070723
  Transmission Date: 20080115
  Serious: Yes (Other)
  Sender: FDA-Public Use
  Company Number: IT-SANOFI-SYNTHELABO-A06200700327

PATIENT
  Age: 76 Year
  Sex: Female

DRUGS (5)
  1. RALTITREXED [Suspect]
     Indication: RECTAL CANCER STAGE II
     Route: 042
     Dates: start: 20050201, end: 20050201
  2. ACIDO FOLINICO [Suspect]
     Indication: RECTAL CANCER STAGE II
     Route: 042
     Dates: start: 20050201, end: 20050201
  3. OXALIPLATINO [Suspect]
     Indication: RECTAL CANCER STAGE II
     Route: 041
     Dates: start: 20050201, end: 20050201
  4. CORDARONE [Concomitant]
     Indication: ATRIAL FIBRILLATION
     Dosage: UNK
     Route: 065
     Dates: start: 20050301
  5. FLUOROURACIL [Suspect]
     Indication: RECTAL CANCER STAGE II
     Route: 042
     Dates: start: 20050201, end: 20050201

REACTIONS (2)
  - METASTASES TO SALIVARY GLAND [None]
  - METASTASES TO SKIN [None]
